FAERS Safety Report 6868931-0 (Version None)
Quarter: 2010Q3

REPORT INFORMATION
  Report Type: 
  Country: None (occurrence: None)
  Receive Date: 20100722
  Receipt Date: 20080711
  Transmission Date: 20110219
  Serious: Yes (Other)
  Sender: FDA-Public Use
  Company Number: US-PFIZER INC-2008051456

PATIENT
  Sex: Male
  Weight: 73.181 kg

DRUGS (2)
  1. CHANTIX [Suspect]
     Indication: SMOKING CESSATION THERAPY
     Route: 048
     Dates: start: 20080501
  2. LAMISIL [Concomitant]

REACTIONS (3)
  - AGEUSIA [None]
  - GLOSSODYNIA [None]
  - URTICARIA [None]
